FAERS Safety Report 4334636-3 (Version None)
Quarter: 2004Q2

REPORT INFORMATION
  Report Type: 
  Country: None (occurrence: None)
  Receive Date: 20040408
  Receipt Date: 20040330
  Transmission Date: 20050107
  Serious: Yes (Other)
  Sender: FDA-Public Use
  Company Number: PHBS2004US04470

PATIENT
  Age: 6 Year
  Sex: Male

DRUGS (3)
  1. CARBAMAZEPINE [Suspect]
     Indication: CONVULSION
     Route: 065
  2. PHENYTOIN [Suspect]
     Indication: CONVULSION
     Route: 065
  3. VALPROATE SODIUM [Suspect]
     Indication: CONVULSION
     Route: 065

REACTIONS (3)
  - CEREBRAL ATROPHY [None]
  - CEREBRAL DISORDER [None]
  - TEMPORAL LOBE EPILEPSY [None]
